FAERS Safety Report 6466292-2 (Version None)
Quarter: 2009Q4

REPORT INFORMATION
  Report Type: 
  Country: None (occurrence: None)
  Receive Date: 20091202
  Receipt Date: 20091127
  Transmission Date: 20100525
  Serious: Yes (Death)
  Sender: FDA-Public Use
  Company Number: PHHY2009CA18312

PATIENT
  Sex: Male

DRUGS (2)
  1. ACLASTA [Suspect]
     Dosage: UNK
     Route: 042
     Dates: start: 20080527
  2. ACLASTA [Suspect]
     Dosage: UNK
     Route: 042
     Dates: start: 20091009

REACTIONS (2)
  - DEATH [None]
  - DRUG INEFFECTIVE [None]
